FAERS Safety Report 4579978-1 (Version None)
Quarter: 2005Q1

REPORT INFORMATION
  Report Type: 
  Country: None (occurrence: None)
  Receive Date: 20050214
  Receipt Date: 20040716
  Transmission Date: 20050727
  Serious: Yes (Death)
  Sender: FDA-Public Use
  Company Number: US-ROCHE-374612

PATIENT
  Age: 16 Year
  Sex: Male
  Weight: 66.2 kg

DRUGS (3)
  1. ACCUTANE [Suspect]
     Dosage: 40MG CAPSULES.
     Route: 048
     Dates: start: 20000727, end: 20001026
  2. ACCUTANE [Suspect]
     Dosage: 40MG AND 20MG CAPSULES.
     Route: 048
     Dates: start: 20001026, end: 20010425
  3. ACCUTANE [Suspect]
     Dosage: 20MG CAPSULES.
     Route: 048
     Dates: start: 20010425

REACTIONS (17)
  - ACNE [None]
  - CEREBRAL ISCHAEMIA [None]
  - COMPLETED SUICIDE [None]
  - CONDITION AGGRAVATED [None]
  - ERYTHEMA [None]
  - EXCORIATION [None]
  - IMPETIGO [None]
  - INJURY ASPHYXIATION [None]
  - LIP DRY [None]
  - LIP PAIN [None]
  - LOW DENSITY LIPOPROTEIN INCREASED [None]
  - PETECHIAE [None]
  - PHARYNGOLARYNGEAL PAIN [None]
  - SCAR [None]
  - SCHOOL REFUSAL [None]
  - SKIN LESION [None]
  - WHITE BLOOD CELL COUNT DECREASED [None]
